FAERS Safety Report 4795764-1 (Version None)
Quarter: 2005Q4

REPORT INFORMATION
  Report Type: 
  Country: None (occurrence: None)
  Receive Date: 20051012
  Receipt Date: 20051005
  Transmission Date: 20060501
  Serious: Yes (Hospitalization)
  Sender: FDA-Public Use
  Company Number: 200518930GDDC

PATIENT
  Age: 44 Year
  Sex: Male

DRUGS (5)
  1. LANTUS [Suspect]
     Indication: DIABETES MELLITUS
     Route: 058
     Dates: start: 20050722
  2. HUMALOG [Suspect]
     Indication: DIABETES MELLITUS
     Route: 058
  3. DIOVAN [Concomitant]
     Indication: HYPERTENSION
     Route: 048
  4. ACCUPRIL [Concomitant]
     Indication: HYPERTENSION
     Route: 048
  5. CRESTOR [Concomitant]
     Indication: BLOOD CHOLESTEROL INCREASED
     Route: 048

REACTIONS (1)
  - HYPOGLYCAEMIC SEIZURE [None]
